FAERS Safety Report 18755182 (Version 4)
Quarter: 2021Q3

REPORT INFORMATION
  Report Type: Report from Study
  Country: TH (occurrence: TH)
  Receive Date: 20210119
  Receipt Date: 20210923
  Transmission Date: 20211014
  Serious: Yes (Other)
  Sender: FDA-Public Use
  Company Number: NVSC2020TH249246

PATIENT
  Sex: Female

DRUGS (3)
  1. KISQALI [Suspect]
     Active Substance: RIBOCICLIB
     Dosage: UNK
     Route: 065
  2. KISQALI [Suspect]
     Active Substance: RIBOCICLIB
     Indication: BREAST CANCER METASTATIC
     Dosage: 3 DF
     Route: 048
  3. KISQALI [Suspect]
     Active Substance: RIBOCICLIB
     Dosage: 2 DF
     Route: 048

REACTIONS (9)
  - Haematochezia [Unknown]
  - White blood cell count decreased [Unknown]
  - Malignant neoplasm progression [Unknown]
  - Breast cancer metastatic [Unknown]
  - Underdose [Unknown]
  - Haemorrhoidal haemorrhage [Recovered/Resolved]
  - Fatigue [Unknown]
  - Haemorrhoids [Unknown]
  - Dizziness [Unknown]
